FAERS Safety Report 9142746 (Version 1)
Quarter: 2013Q1

REPORT INFORMATION
  Report Type: Spontaneous
  Country: US (occurrence: US)
  Receive Date: 20130306
  Receipt Date: 20130306
  Transmission Date: 20140127
  Serious: No
  Sender: FDA-Public Use
  Company Number: US-ENDO PHARMACEUTICALS INC.-OPER20120261

PATIENT
  Sex: Male

DRUGS (5)
  1. OPANA [Suspect]
     Indication: BREAKTHROUGH PAIN
     Route: 048
  2. OPANA [Suspect]
     Indication: NECK PAIN
  3. OPANA [Suspect]
     Indication: BACK PAIN
  4. OPANA ER 20MG [Concomitant]
     Indication: INTERVERTEBRAL DISC PROTRUSION
     Route: 048
     Dates: end: 20120227
  5. OPANA ER 20MG [Concomitant]
     Indication: NECK PAIN

REACTIONS (1)
  - No adverse event [Not Recovered/Not Resolved]
